FAERS Safety Report 5618860-5 (Version None)
Quarter: 2008Q1

REPORT INFORMATION
  Report Type: 
  Country: None (occurrence: None)
  Receive Date: 20080207
  Receipt Date: 20080129
  Transmission Date: 20080703
  Serious: Yes (Hospitalization)
  Sender: FDA-Public Use
  Company Number: DE-ABBOTT-08P-062-0435801-00

PATIENT
  Sex: Male
  Weight: 5.52 kg

DRUGS (1)
  1. SYNAGIS INJECTION [Suspect]
     Indication: ANTIVIRAL PROPHYLAXIS
     Dates: start: 20071123, end: 20071123

REACTIONS (1)
  - RESPIRATORY SYNCYTIAL VIRUS INFECTION [None]
